FAERS Safety Report 8984691 (Version 1)
Quarter: 2012Q4

REPORT INFORMATION
  Report Type: 
  Country: BR (occurrence: BR)
  Receive Date: 20121226
  Receipt Date: 20121226
  Transmission Date: 20130627
  Serious: Yes (Hospitalization)
  Sender: FDA-Public Use
  Company Number: BR-BAYER-2012-132795

PATIENT
  Age: 7 Month
  Sex: Male
  Weight: 3.62 kg

DRUGS (1)
  1. MIRANOVA [Suspect]

REACTIONS (4)
  - Haematemesis [Recovered/Resolved]
  - Foetal exposure during pregnancy [None]
  - Vitamin K decreased [Recovered/Resolved]
  - Pulmonary hypertension [Recovered/Resolved]
